FAERS Safety Report 4302030-7 (Version None)
Quarter: 2004Q1

REPORT INFORMATION
  Report Type: 
  Country: None (occurrence: None)
  Receive Date: 20040220
  Receipt Date: 20040203
  Transmission Date: 20041129
  Serious: Yes (Hospitalization)
  Sender: FDA-Public Use
  Company Number: JP-JNJFOC-20031002624

PATIENT
  Age: 42 Year
  Sex: Female
  Weight: 50 kg

DRUGS (8)
  1. REMICADE [Suspect]
     Indication: RHEUMATOID ARTHRITIS
     Dosage: 3 MG/KG, 1 IN 1 AS NECESSARY, INTRAVENOUS DRIP
     Route: 041
     Dates: start: 20031004, end: 20031004
  2. METHOTREXATE [Concomitant]
  3. PREDNONIN (PREDNISOLONE) [Concomitant]
  4. VOLTAREN [Concomitant]
  5. ISCOTIN (ALDIOXA) TABLETS [Concomitant]
  6. CIMETIDINE (CIMETIDINE) TABLETS [Concomitant]
  7. LEVOTHYROXINE SODIUM [Concomitant]
  8. CLINORIL (SULINDAC) TABLETS [Concomitant]

REACTIONS (15)
  - ARTHRALGIA [None]
  - ARTHRITIS INFECTIVE [None]
  - ARTHROPATHY [None]
  - BLOOD CREATININE INCREASED [None]
  - C-REACTIVE PROTEIN INCREASED [None]
  - CELLULITIS [None]
  - DRUG HYPERSENSITIVITY [None]
  - HYPERKERATOSIS [None]
  - JOINT SWELLING [None]
  - NEUTROPHIL COUNT ABNORMAL [None]
  - PAIN IN EXTREMITY [None]
  - PURPURA [None]
  - SEPSIS [None]
  - STAPHYLOCOCCAL INFECTION [None]
  - WHITE BLOOD CELL COUNT INCREASED [None]
